FAERS Safety Report 6693396-1 (Version None)
Quarter: 2010Q2

REPORT INFORMATION
  Report Type: 
  Country: None (occurrence: None)
  Receive Date: 20100420
  Receipt Date: 20100412
  Transmission Date: 20101027
  Serious: Yes (Disabling)
  Sender: FDA-Public Use
  Company Number: 2010EU000490

PATIENT
  Age: 20 Year
  Sex: Female

DRUGS (3)
  1. VESICARE [Suspect]
     Indication: BLADDER DISCOMFORT
     Dosage: 10 MG, UID/QD, ORAL
     Route: 048
     Dates: start: 20080523
  2. VESICARE [Suspect]
     Indication: HYPERTONIC BLADDER
     Dosage: 10 MG, UID/QD, ORAL
     Route: 048
     Dates: start: 20080523
  3. ISPAGHULA HUSK            (PLANTAGO OVATA HUSK) [Concomitant]

REACTIONS (9)
  - ABDOMINAL DISCOMFORT [None]
  - BLADDER DISORDER [None]
  - CHEST PAIN [None]
  - DRUG WITHDRAWAL SYNDROME [None]
  - HYPERHIDROSIS [None]
  - HYPERTONIC BLADDER [None]
  - INTESTINAL FUNCTIONAL DISORDER [None]
  - PAIN IN EXTREMITY [None]
  - SKIN DISORDER [None]
